FAERS Safety Report 7633119-2 (Version None)
Quarter: 2011Q3

REPORT INFORMATION
  Report Type: 
  Country: None (occurrence: None)
  Receive Date: 20110725
  Receipt Date: 20110721
  Transmission Date: 20111222
  Serious: Yes (Death, Hospitalization)
  Sender: FDA-Public Use
  Company Number: PHHY2011US65326

PATIENT

DRUGS (1)
  1. AFINITOR [Suspect]
     Dosage: 10 MG, DAILY
     Route: 048

REACTIONS (5)
  - DEATH [None]
  - DYSPNOEA [None]
  - NEOPLASM MALIGNANT [None]
  - TERMINAL STATE [None]
  - NEOPLASM PROGRESSION [None]
